FAERS Safety Report 15566096 (Version 1)
Quarter: 2018Q4

REPORT INFORMATION
  Report Type: Spontaneous
  Country: US (occurrence: US)
  Receive Date: 20181025
  Receipt Date: 20181025
  Transmission Date: 20190205
  Serious: Yes (Life-Threatening)
  Sender: FDA-Public Use
  Company Number: None

PATIENT

DRUGS (1)
  1. EDTA IV VERSENATE (EDETATE CALCIUM DISODIUM) [Suspect]
     Active Substance: EDETATE CALCIUM DISODIUM

REACTIONS (1)
  - Product availability issue [None]

NARRATIVE: CASE EVENT DATE: 20181025
